FAERS Safety Report 5579795-X (Version None)
Quarter: 2007Q4

REPORT INFORMATION
  Report Type: 
  Country: None (occurrence: None)
  Receive Date: 20071130
  Receipt Date: 20070710
  Transmission Date: 20080405
  Serious: No
  Sender: FDA-Public Use
  Company Number: US200707002723

PATIENT
  Age: 70 Year
  Sex: Male
  Weight: 115.2 kg

DRUGS (1)
  1. BYETTA [Suspect]
     Indication: TYPE 2 DIABETES MELLITUS
     Dosage: 5 UG, 2/D, SUBCUTANEOUS ; 10 UG
     Route: 058

REACTIONS (4)
  - DECREASED APPETITE [None]
  - DRUG EFFECT DECREASED [None]
  - INCREASED APPETITE [None]
  - WEIGHT DECREASED [None]
